FAERS Safety Report 17677396 (Version 2)
Quarter: 2021Q1

REPORT INFORMATION
  Report Type: Spontaneous
  Country: GB (occurrence: GB)
  Receive Date: 20200416
  Receipt Date: 20210301
  Transmission Date: 20210419
  Serious: Yes (Hospitalization, Other)
  Sender: FDA-Public Use
  Company Number: NVSC2020GB101816

PATIENT
  Age: 56 Year
  Sex: Female

DRUGS (20)
  1. FLUCONAZOLE. [Concomitant]
     Active Substance: FLUCONAZOLE
     Indication: PRODUCT USED FOR UNKNOWN INDICATION
     Dosage: 50 MG (STANDARDHROPHYLACTICFOR 2NDREGIME)
     Route: 048
     Dates: start: 20151130
  2. LETROZOLE. [Suspect]
     Active Substance: LETROZOLE
     Indication: BREAST CANCER
     Dosage: 2.5 MG
     Route: 048
     Dates: start: 20150709, end: 20151015
  3. DOMPERIDONE [Concomitant]
     Active Substance: DOMPERIDONE
     Indication: PRODUCT USED FOR UNKNOWN INDICATION
     Dosage: 10 MG (STANDARD DRUG IN SECOND CHEMO REGIME, AS NEEDED)
     Route: 048
     Dates: start: 20151126
  4. DOCETAXEL. [Suspect]
     Active Substance: DOCETAXEL
     Indication: BREAST CANCER
     Dosage: 150 MG, Q3W, 6 CYCLES
     Route: 042
     Dates: start: 20151127
  5. DENOSUMAB [Suspect]
     Active Substance: DENOSUMAB
     Dosage: 150 MG, TIW
     Route: 042
     Dates: start: 20151126
  6. LOPERAMIDE [Concomitant]
     Active Substance: LOPERAMIDE
     Indication: PRODUCT USED FOR UNKNOWN INDICATION
     Dosage: 2 MG (STANDARD DRUG IN SECOND CHEMO REGIME, AS NEEDED)
     Route: 048
     Dates: start: 20151126
  7. CALCICHEW [Concomitant]
     Active Substance: CALCIUM CARBONATE
     Indication: PRODUCT USED FOR UNKNOWN INDICATION
     Dosage: 1.25 G, QD (STANDARD SUPPLIMENT)
     Route: 048
     Dates: start: 20150723
  8. PERTUZUMAB. [Suspect]
     Active Substance: PERTUZUMAB
     Indication: BREAST CANCER
     Dosage: 840 MG (LOADING DOSE)
     Route: 042
     Dates: start: 20151125, end: 20151125
  9. DEXAMETHASONE. [Concomitant]
     Active Substance: DEXAMETHASONE
     Dosage: 8 MG, QD (STANDARD DRUG IN SECOND STEROID REGIME,PRIOR TO CHEMO CYCLE)
     Route: 048
     Dates: start: 20151125
  10. TRASTUZUMAB EMTANSINE [Suspect]
     Active Substance: ADO-TRASTUZUMAB EMTANSINE
     Dosage: 672 MG, TIW
     Route: 042
     Dates: start: 20151217
  11. DEXAMETHASONE. [Concomitant]
     Active Substance: DEXAMETHASONE
     Indication: PRODUCT USED FOR UNKNOWN INDICATION
     Dosage: 16 MG, QD (STANDARD DRUG IN SECOND STEROID REGIME,PRIOR TO CHEMO CYCLE)
     Route: 048
     Dates: start: 20151125
  12. COLECALCIFEROL [Concomitant]
     Active Substance: CHOLECALCIFEROL
     Indication: PULMONARY EMBOLISM
     Dosage: 1 UNK, QD (20000 UNIT)
     Route: 048
     Dates: start: 20151203
  13. DENOSUMAB [Suspect]
     Active Substance: DENOSUMAB
     Indication: BREAST CANCER
     Dosage: 120 MG, Q4W (1 CYCLE)
     Route: 058
     Dates: start: 20150723
  14. TRASTUZUMAB. [Suspect]
     Active Substance: TRASTUZUMAB
     Indication: BREAST CANCER
     Dosage: 672 MG, TIW (6 CYCLES)
     Route: 042
     Dates: start: 20151127, end: 20181204
  15. TRASTUZUMAB EMTANSINE [Suspect]
     Active Substance: ADO-TRASTUZUMAB EMTANSINE
     Indication: BREAST CANCER
     Dosage: 672 MG, TIW, 6 CYCLES
     Route: 042
     Dates: start: 20151126
  16. DOCETAXEL. [Suspect]
     Active Substance: DOCETAXEL
     Dosage: 150 MG, TIW
     Route: 042
     Dates: start: 20151217
  17. DENOSUMAB [Suspect]
     Active Substance: DENOSUMAB
     Dosage: 70 MG
     Route: 058
     Dates: start: 20150820
  18. LEVOFLOXACIN. [Concomitant]
     Active Substance: LEVOFLOXACIN
     Indication: PRODUCT USED FOR UNKNOWN INDICATION
     Dosage: 500 MG (STANDARD PROPHYTHOLYTIC DRUG GIVEN WITH 2ND REGIME)
     Route: 048
     Dates: start: 20151130
  19. DALTEPARIN [Concomitant]
     Active Substance: DALTEPARIN
     Indication: PRODUCT USED FOR UNKNOWN INDICATION
     Dosage: 2 UNK, QD (10000 UNITS)
     Route: 058
     Dates: start: 20160421
  20. PERTUZUMAB. [Suspect]
     Active Substance: PERTUZUMAB
     Dosage: 420 MG, TIW (6 CYCLES)
     Route: 042
     Dates: start: 20151215

REACTIONS (9)
  - Rectal haemorrhage [Recovered/Resolved]
  - Alopecia [Recovered/Resolved]
  - Headache [Recovered/Resolved]
  - Oropharyngeal pain [Recovered/Resolved]
  - Stomatitis [Unknown]
  - Neurotoxicity [Unknown]
  - Constipation [Unknown]
  - Nausea [Unknown]
  - Febrile neutropenia [Recovered/Resolved]

NARRATIVE: CASE EVENT DATE: 20151203
